FAERS Safety Report 5594677-5 (Version None)
Quarter: 2008Q1

REPORT INFORMATION
  Report Type: 
  Country: None (occurrence: None)
  Receive Date: 20080115
  Receipt Date: 20080109
  Transmission Date: 20080703
  Serious: Yes (Hospitalization, Other)
  Sender: FDA-Public Use
  Company Number: 2007SP020634

PATIENT
  Age: 30 Year
  Sex: Female

DRUGS (6)
  1. PEG-INTRON [Suspect]
     Indication: HEPATITIS C
     Dosage: 100 MCG;QW;SC
     Route: 058
     Dates: start: 20060701, end: 20070401
  2. COPEGUS [Suspect]
     Indication: HEPATITIS C
     Dosage: 1 GM;QD;PO
     Route: 048
     Dates: start: 20060701, end: 20070401
  3. CORTISONE ACETATE [Suspect]
     Indication: FACE OEDEMA
  4. CORTISONE ACETATE [Suspect]
     Indication: URTICARIA
  5. CIPRALEX [Concomitant]
  6. DIKLOFENAK [Concomitant]

REACTIONS (4)
  - ANGIOEDEMA [None]
  - DEPRESSION [None]
  - URTICARIA [None]
  - WEIGHT INCREASED [None]
